FAERS Safety Report 16790441 (Version 1)
Quarter: 2019Q4

REPORT INFORMATION
  Report Type: Spontaneous
  Country: US (occurrence: US)
  Receive Date: 20190909
  Receipt Date: 20190909
  Transmission Date: 20200122
  Serious: Yes (Other)
  Sender: FDA-Public Use
  Company Number: None

PATIENT
  Age: 47 Year
  Sex: Female
  Weight: 57.6 kg

DRUGS (3)
  1. TRETINOIN TOPICAL [Concomitant]
     Active Substance: TRETINOIN
  2. ASPIRIN. [Concomitant]
     Active Substance: ASPIRIN
  3. SOOLANTRA [Suspect]
     Active Substance: IVERMECTIN
     Indication: ROSACEA
     Dosage: ?          QUANTITY:1 PEA-SIZED;?
     Route: 061
     Dates: start: 20190521, end: 20190830

REACTIONS (4)
  - Myalgia [None]
  - Diplopia [None]
  - Tremor [None]
  - Arthralgia [None]

NARRATIVE: CASE EVENT DATE: 20190906
